FAERS Safety Report 8452168-8 (Version None)
Quarter: 2012Q2

REPORT INFORMATION
  Report Type: 
  Country: None (occurrence: None)
  Receive Date: 20120620
  Receipt Date: 20120404
  Transmission Date: 20120825
  Serious: No
  Sender: FDA-Public Use
  Company Number: US-VERTEX PHARMACEUTICALS INC.-AE-2012-004695

PATIENT
  Sex: Female
  Weight: 55.842 kg

DRUGS (5)
  1. RIBAVIRIN [Concomitant]
     Indication: HEPATITIS C
     Route: 048
     Dates: start: 20120331
  2. PERCOCET [Concomitant]
     Indication: BONE PAIN
     Route: 048
  3. PEGASYS [Concomitant]
     Indication: HEPATITIS C
     Route: 058
     Dates: start: 20120331
  4. ESTRACE [Concomitant]
     Indication: HORMONE REPLACEMENT THERAPY
     Route: 048
  5. INCIVEK [Suspect]
     Indication: HEPATITIS C
     Route: 048
     Dates: start: 20120331

REACTIONS (9)
  - DYSGEUSIA [None]
  - NAUSEA [None]
  - AFFECT LABILITY [None]
  - DECREASED APPETITE [None]
  - FLUSHING [None]
  - CRYING [None]
  - VOMITING [None]
  - RASH PAPULAR [None]
  - ERYTHEMA [None]
